FAERS Safety Report 9819542 (Version 1)
Quarter: 2014Q1

REPORT INFORMATION
  Report Type: Spontaneous
  Country: US (occurrence: None)
  Receive Date: 20140113
  Receipt Date: 20140113
  Transmission Date: 20141002
  Serious: Yes (Other)
  Sender: FDA-Public Use
  Company Number: 2014-00004

PATIENT
  Age: 19 Year
  Sex: Male
  Weight: 74.84 kg

DRUGS (1)
  1. UNSPECIFIED ZICAM PRODUCT [Suspect]
     Dosage: 1 BY MOUTH
     Route: 048
     Dates: start: 20131221

REACTIONS (3)
  - Convulsion [None]
  - Dehydration [None]
  - Blood potassium decreased [None]
